FAERS Safety Report 7014767-X (Version None)
Quarter: 2010Q3

REPORT INFORMATION
  Report Type: 
  Country: None (occurrence: None)
  Receive Date: 20100927
  Receipt Date: 20100915
  Transmission Date: 20110219
  Serious: Yes (Hospitalization)
  Sender: FDA-Public Use
  Company Number: PHHY2010BE61593

PATIENT
  Age: 55 Year
  Sex: Female

DRUGS (1)
  1. CERTICAN [Suspect]

REACTIONS (2)
  - ENDOTRACHEAL INTUBATION [None]
  - INTERSTITIAL LUNG DISEASE [None]
